FAERS Safety Report 25051139 (Version 1)
Quarter: 2025Q1

REPORT INFORMATION
  Report Type: Spontaneous
  Country: JP (occurrence: JP)
  Receive Date: 20250307
  Receipt Date: 20250307
  Transmission Date: 20250409
  Serious: Yes (Other)
  Sender: MERCK SHARP & DOHME LLC
  Company Number: JP-MSD-M2024-48742

PATIENT
  Age: 57 Year
  Sex: Male

DRUGS (1)
  1. PREVYMIS [Suspect]
     Active Substance: LETERMOVIR
     Indication: Antiviral prophylaxis
     Dosage: DOSE DESCRIPTION : 240 MILLIGRAM, QD?DAILY DOSE : 240 MILLIGRAM
     Route: 048

REACTIONS (2)
  - Proteinuria [Unknown]
  - Underdose [Unknown]

NARRATIVE: CASE EVENT DATE: 20241201
